FAERS Safety Report 6412814-7 (Version None)
Quarter: 2009Q4

REPORT INFORMATION
  Report Type: 
  Country: None (occurrence: None)
  Receive Date: 20091023
  Receipt Date: 20091012
  Transmission Date: 20100525
  Serious: Yes (Other)
  Sender: FDA-Public Use
  Company Number: US-ELI_LILLY_AND_COMPANY-US200901004025

PATIENT
  Weight: 3.061 kg

DRUGS (5)
  1. CYMBALTA [Suspect]
     Indication: BIPOLAR I DISORDER
     Dosage: 120 MG, DAILY (1/D)
     Route: 064
     Dates: start: 20050101
  2. CYMBALTA [Suspect]
     Dosage: 30 MG, UNK
     Dates: end: 20080927
  3. LAMICTAL [Concomitant]
     Indication: BIPOLAR DISORDER
     Dosage: 200 MG, UNK
     Route: 064
     Dates: end: 20080927
  4. ABILIFY [Concomitant]
     Indication: BIPOLAR DISORDER
     Dosage: 15 MG, UNK
     Route: 064
     Dates: end: 20080927
  5. CONCERTA [Concomitant]
     Indication: BIPOLAR DISORDER
     Dosage: 54 MG, UNK
     Route: 064
     Dates: end: 20080927

REACTIONS (2)
  - AUTISM [None]
  - DRUG EXPOSURE DURING PREGNANCY [None]
